FAERS Safety Report 8650240 (Version 2)
Quarter: 2012Q4

REPORT INFORMATION
  Report Type: 
  Country: US (occurrence: US)
  Receive Date: 20120705
  Receipt Date: 20121108
  Transmission Date: 20130627
  Serious: Yes (Hospitalization, Other)
  Sender: FDA-Public Use
  Company Number: US-PFIZER INC-2012158138

PATIENT
  Age: 48 Year
  Sex: Female

DRUGS (3)
  1. CHANTIX [Suspect]
     Indication: SMOKING CESSATION THERAPY
     Dosage: UNK
     Dates: start: 20070607, end: 200710
  2. CHANTIX [Suspect]
     Dosage: half tablet once daily and then half tablet twice daily
     Dates: start: 20090806, end: 20090818
  3. LEVOXYL [Concomitant]
     Indication: PITUITARY ADENOMA
     Dosage: UNK
     Dates: start: 2002

REACTIONS (5)
  - Intentional overdose [Recovered/Resolved]
  - Suicide attempt [Recovered/Resolved]
  - Loss of consciousness [Unknown]
  - Depression [Not Recovered/Not Resolved]
  - Anxiety [Not Recovered/Not Resolved]
